FAERS Safety Report 15835395 (Version 2)
Quarter: 2019Q1

REPORT INFORMATION
  Report Type: Report from Study
  Country: None (occurrence: RO)
  Receive Date: 20190117
  Receipt Date: 20190215
  Transmission Date: 20190417
  Serious: Yes (Other)
  Sender: FDA-Public Use
  Company Number: RO-ABBVIE-19S-135-2626066-00

PATIENT
  Age: 61 Year
  Sex: Female

DRUGS (8)
  1. VIEKIRAX [Suspect]
     Active Substance: OMBITASVIR\PARITAPREVIR\RITONAVIR
     Indication: HEPATITIS C
     Dosage: ADMINISTER THE ABBVIE MEDICATION WITHOUT FOOD.
     Route: 048
     Dates: start: 20181115, end: 20190201
  2. BETALOC [Concomitant]
     Active Substance: METOPROLOL TARTRATE
     Indication: HYPERTENSION
     Route: 048
  3. EXVIERA [Suspect]
     Active Substance: DASABUVIR
     Indication: HEPATITIS C
     Dosage: ADMINISTER THE ABBVIE MEDICATION WITHOUT FOOD.
     Route: 048
     Dates: start: 20181115, end: 20190201
  4. EXVIERA [Suspect]
     Active Substance: DASABUVIR
     Indication: HEPATIC CIRRHOSIS
  5. TERTENSIF [Concomitant]
     Active Substance: INDAPAMIDE
     Indication: HYPERTENSION
     Route: 048
     Dates: start: 20190116
  6. ATACAND [Concomitant]
     Active Substance: CANDESARTAN CILEXETIL
     Indication: HYPERTENSION
     Route: 048
     Dates: start: 20190116
  7. CAPTOPRIL. [Suspect]
     Active Substance: CAPTOPRIL
     Indication: HYPERTENSION
     Route: 048
     Dates: start: 201811
  8. VIEKIRAX [Suspect]
     Active Substance: OMBITASVIR\PARITAPREVIR\RITONAVIR
     Indication: HEPATIC CIRRHOSIS

REACTIONS (13)
  - Hypertension [Not Recovered/Not Resolved]
  - Dysstasia [Recovering/Resolving]
  - Influenza [Not Recovered/Not Resolved]
  - Infarction [Recovered/Resolved]
  - Headache [Not Recovered/Not Resolved]
  - Panic attack [Recovered/Resolved]
  - Confusional state [Not Recovered/Not Resolved]
  - Heart rate increased [Not Recovered/Not Resolved]
  - Product administration error [Not Recovered/Not Resolved]
  - Confusional state [Unknown]
  - Feeling abnormal [Unknown]
  - Respiratory tract infection viral [Not Recovered/Not Resolved]
  - Chest discomfort [Not Recovered/Not Resolved]

NARRATIVE: CASE EVENT DATE: 201811
